FAERS Safety Report 6017169-8 (Version None)
Quarter: 2008Q4

REPORT INFORMATION
  Report Type: 
  Country: None (occurrence: None)
  Receive Date: 20081223
  Receipt Date: 20081215
  Transmission Date: 20090506
  Serious: Yes (Hospitalization, Other)
  Sender: FDA-Public Use
  Company Number: DE-BAXTER-2008BH013893

PATIENT
  Sex: Male
  Weight: 72 kg

DRUGS (10)
  1. ENDOXAN BAXTER [Suspect]
     Indication: CHRONIC LYMPHOCYTIC LEUKAEMIA
     Route: 042
     Dates: start: 20080610, end: 20080806
  2. FLUDARABINE PHOSPHATE [Suspect]
     Indication: CHRONIC LYMPHOCYTIC LEUKAEMIA
     Route: 042
     Dates: start: 20080610, end: 20080806
  3. DEXAMETHASONE [Concomitant]
     Indication: CHRONIC LYMPHOCYTIC LEUKAEMIA
     Route: 042
     Dates: start: 20080610, end: 20080806
  4. RED BLOOD CELLS [Concomitant]
     Route: 042
     Dates: start: 20080724, end: 20080905
  5. METOCLOPRAMIDE [Concomitant]
     Route: 048
     Dates: start: 20080610, end: 20080804
  6. MESNA [Concomitant]
     Route: 042
     Dates: start: 20080610, end: 20080806
  7. NEULASTA [Concomitant]
     Route: 058
     Dates: start: 20080808, end: 20080808
  8. ONDANSETRON [Concomitant]
     Route: 048
     Dates: start: 20080610, end: 20080808
  9. ONDANSETRON [Concomitant]
     Route: 042
     Dates: start: 20080610, end: 20080806
  10. RANITIDINE [Concomitant]
     Route: 042
     Dates: start: 20080610, end: 20080806

REACTIONS (1)
  - COOMBS POSITIVE HAEMOLYTIC ANAEMIA [None]
